FAERS Safety Report 5397382-3 (Version None)
Quarter: 2007Q3

REPORT INFORMATION
  Report Type: 
  Country: None (occurrence: None)
  Receive Date: 20070726
  Receipt Date: 20070719
  Transmission Date: 20080115
  Serious: Yes (Hospitalization)
  Sender: FDA-Public Use
  Company Number: PHHO2007JP10582

PATIENT
  Age: 75 Year
  Sex: Male

DRUGS (5)
  1. LOCHOL [Suspect]
     Indication: HYPERCHOLESTEROLAEMIA
     Dosage: 20 MG, QD
     Route: 048
     Dates: start: 20020301, end: 20061018
  2. DIOVAN [Suspect]
     Dosage: 80 MG, QD
     Route: 048
     Dates: start: 20020220
  3. ASPIRIN [Suspect]
     Dosage: 100 MG, QD
     Route: 048
     Dates: start: 20020220
  4. NIVADIL [Suspect]
     Dosage: 8 MG, QD
     Route: 048
     Dates: start: 20020913
  5. MAGNESIUM OXIDE HEAVY [Concomitant]

REACTIONS (2)
  - BRAIN ABSCESS [None]
  - HEMIPLEGIA [None]
